FAERS Safety Report 23912264 (Version 1)
Quarter: 2024Q2

REPORT INFORMATION
  Report Type: Spontaneous
  Country: ZA (occurrence: None)
  Receive Date: 20240528
  Receipt Date: 20240528
  Transmission Date: 20240716
  Serious: Yes (Other)
  Sender: FDA-Public Use
  Company Number: 2024A120773

PATIENT
  Age: 67 Year
  Sex: Male

DRUGS (8)
  1. BUDESONIDE\FORMOTEROL [Suspect]
     Active Substance: BUDESONIDE\FORMOTEROL
     Indication: Asthma
     Dosage: 60 UG/INHAL, FREQUENCY UNKNOWN. UNKNOWN
     Route: 055
  2. NIOSAR CO [Concomitant]
     Indication: Hypertension
     Dosage: 12.5MG UNKNOWN
     Route: 048
  3. DOXYCYCLINE HYDROCHLORIDE [Concomitant]
     Active Substance: DOXYCYCLINE HYDROCHLORIDE
     Indication: Bacterial infection
     Dosage: 100.0MG UNKNOWN
     Route: 048
  4. ESCITALOPRAM [Concomitant]
     Active Substance: ESCITALOPRAM OXALATE
     Indication: Depression
     Dosage: 20.0MG UNKNOWN
     Route: 048
  5. METHOTREXATE SODIUM [Concomitant]
     Active Substance: METHOTREXATE SODIUM
     Indication: Targeted cancer therapy
     Dosage: 2.5MG UNKNOWN
     Route: 048
  6. NITRAZEPAM [Concomitant]
     Active Substance: NITRAZEPAM
     Indication: Sleep disorder
     Dosage: 5.0MG UNKNOWN
     Route: 048
  7. HYDROCHLOROTHIAZIDE\VALSARTAN [Concomitant]
     Active Substance: HYDROCHLOROTHIAZIDE\VALSARTAN
     Indication: Hypertension
     Dosage: 12.5MG UNKNOWN
     Route: 048
  8. ZOPICLONE [Concomitant]
     Active Substance: ZOPICLONE
     Indication: Sleep disorder therapy
     Dosage: 7.5MG UNKNOWN
     Route: 048

REACTIONS (1)
  - Limb injury [Unknown]
